FAERS Safety Report 4359590-X (Version None)
Quarter: 2004Q2

REPORT INFORMATION
  Report Type: 
  Country: None (occurrence: None)
  Receive Date: 20040518
  Receipt Date: 20040507
  Transmission Date: 20050107
  Serious: Yes (Other)
  Sender: FDA-Public Use
  Company Number: DE-AMGEN-UK075720

PATIENT
  Age: 62 Year
  Sex: Female

DRUGS (5)
  1. KINERET [Suspect]
     Indication: RHEUMATOID ARTHRITIS
     Route: 065
  2. METHOTREXATE [Suspect]
     Route: 065
  3. REMICADE [Suspect]
     Route: 042
     Dates: start: 20010207, end: 20020324
  4. CORTISONE [Concomitant]
     Route: 048
  5. DICLOFENAC [Concomitant]
     Route: 048

REACTIONS (1)
  - BREAST CANCER [None]
